FAERS Safety Report 8806507 (Version 1)
Quarter: 2012Q4

REPORT INFORMATION
  Report Type: 
  Country: FR (occurrence: FR)
  Receive Date: 20120925
  Receipt Date: 20120925
  Transmission Date: 20130627
  Serious: Yes (Hospitalization)
  Sender: FDA-Public Use
  Company Number: FR-MERCK-1209FRA006246

PATIENT
  Age: 75 Year
  Sex: Female

DRUGS (15)
  1. TIENAM 500MG/500MG, POUDRE POUR PERFUSION [Suspect]
     Dosage: 500 mg, qid
     Route: 042
     Dates: start: 20120718
  2. TARGOCID [Suspect]
     Dosage: 400 mg, qid
     Dates: start: 20120715, end: 20120723
  3. RIFADIN [Suspect]
     Indication: INTERVERTEBRAL DISCITIS
     Dosage: 300 mg, tid
     Route: 048
     Dates: start: 20120710, end: 20120813
  4. TAVANIC [Suspect]
     Indication: INTERVERTEBRAL DISCITIS
     Dosage: 250 mg, tid
     Route: 048
     Dates: start: 20120723, end: 20120821
  5. CORDARONE [Suspect]
     Indication: ATRIAL FIBRILLATION
     Dosage: 200 mg, qd
     Route: 048
     Dates: end: 20120821
  6. ORBENINE [Concomitant]
     Dosage: 2 g, UNK
     Route: 042
     Dates: start: 20120619, end: 20120715
  7. INVANZ [Concomitant]
     Dosage: 1 g, qd
     Route: 042
     Dates: start: 20120713, end: 20120718
  8. LEVOTHYROX [Concomitant]
     Dosage: 25 Microgram, qd
  9. PANTOPRAZOLE [Concomitant]
     Dosage: 20 mg, qd
  10. LASILIX [Concomitant]
     Dosage: 40 mg, qd
  11. TRANSIPEG [Concomitant]
     Dosage: 2 DF, qd
  12. KARDEGIC [Concomitant]
     Dosage: 75 mg, qd
  13. CRESTOR [Concomitant]
     Dosage: 10 mg, qd
  14. DIFFU-K [Concomitant]
  15. ECONAZOLE [Concomitant]

REACTIONS (5)
  - Cholestasis [Recovering/Resolving]
  - Blood bilirubin increased [Recovering/Resolving]
  - Blood alkaline phosphatase increased [Recovering/Resolving]
  - Gamma-glutamyltransferase increased [Recovering/Resolving]
  - Jaundice [Recovering/Resolving]
